FAERS Safety Report 5032424-6 (Version None)
Quarter: 2006Q2

REPORT INFORMATION
  Report Type: 
  Country: None (occurrence: None)
  Receive Date: 20060508
  Receipt Date: 20050926
  Transmission Date: 20061013
  Serious: Yes (Hospitalization)
  Sender: FDA-Public Use
  Company Number: 234539K05USA

PATIENT
  Age: 32 Year
  Sex: Female
  Weight: 67.586 kg

DRUGS (2)
  1. REBIF [Suspect]
     Indication: MULTIPLE SCLEROSIS
     Dosage: 44 MCG, 3 IN 1 WEEKS, SUBCUTANEOUS
     Route: 058
     Dates: start: 20020927
  2. VALIUM [Concomitant]

REACTIONS (8)
  - BALANCE DISORDER [None]
  - HYPERSOMNIA [None]
  - MULTIPLE SCLEROSIS RELAPSE [None]
  - MUSCLE SPASMS [None]
  - PAIN [None]
  - SENSORY LOSS [None]
  - VOMITING [None]
  - WEIGHT INCREASED [None]
